FAERS Safety Report 6609962-5 (Version None)
Quarter: 2010Q1

REPORT INFORMATION
  Report Type: 
  Country: None (occurrence: None)
  Receive Date: 20100302
  Receipt Date: 20100222
  Transmission Date: 20100710
  Serious: Yes (Death, Hospitalization)
  Sender: FDA-Public Use
  Company Number: NL-ROCHE-652647

PATIENT
  Sex: Male

DRUGS (5)
  1. CAPECITABINE [Suspect]
     Indication: COLORECTAL CANCER
     Dosage: DATE: LAST CYCLE: 28 JULY 2009
     Route: 048
     Dates: start: 20090616, end: 20090728
  2. BEVACIZUMAB [Suspect]
     Indication: COLORECTAL CANCER
     Dosage: DATE: LAST CYCLE: 28 JULY 2009
     Route: 042
     Dates: start: 20090616, end: 20090728
  3. OXALIPLATIN [Suspect]
     Indication: COLORECTAL CANCER
     Dosage: DATE: LAST CYCLE: 28 JULY 2009
     Route: 042
     Dates: start: 20090616, end: 20090728
  4. OXYCONTIN [Concomitant]
  5. FENTANYL [Concomitant]
     Dosage: DRUG: FENTANYL POMP

REACTIONS (4)
  - HEPATIC FUNCTION ABNORMAL [None]
  - MALAISE [None]
  - MALIGNANT NEOPLASM PROGRESSION [None]
  - TUMOUR PAIN [None]
